FAERS Safety Report 5078544-1 (Version None)
Quarter: 2006Q3

REPORT INFORMATION
  Report Type: 
  Country: None (occurrence: None)
  Receive Date: 20060808
  Receipt Date: 20060802
  Transmission Date: 20061208
  Serious: Yes (Hospitalization, Other)
  Sender: FDA-Public Use
  Company Number: 146519USA

PATIENT
  Age: 48 Year
  Sex: Male

DRUGS (2)
  1. NAPROXEN [Suspect]
     Dosage: 500 MILLIGRAM ORAL
     Dates: start: 20040101, end: 20040101
  2. PRINIVIL [Concomitant]

REACTIONS (3)
  - ABDOMINAL WALL ABSCESS [None]
  - INTESTINAL FISTULA [None]
  - LARGE INTESTINE PERFORATION [None]
